FAERS Safety Report 9308448 (Version 1)
Quarter: 2013Q2

REPORT INFORMATION
  Report Type: Other
  Country: JP (occurrence: JP)
  Receive Date: 20130524
  Receipt Date: 20130524
  Transmission Date: 20140414
  Serious: Yes (Other)
  Sender: FDA-Public Use
  Company Number: JP-BRISTOL-MYERS SQUIBB COMPANY-18898544

PATIENT
  Age: 57 Year
  Sex: Female

DRUGS (3)
  1. CARBOPLATIN [Suspect]
     Indication: LUNG ADENOCARCINOMA STAGE IV
     Dosage: 1 DF:5AUC ON DAY 1
  2. PACLITAXEL [Suspect]
     Indication: LUNG ADENOCARCINOMA STAGE IV
     Dosage: ON DAY 1
  3. BEVACIZUMAB [Suspect]
     Indication: LUNG ADENOCARCINOMA STAGE IV
     Dosage: ON DAY 1

REACTIONS (2)
  - Vasculitis [Recovered/Resolved]
  - Neutropenia [Unknown]
